FAERS Safety Report 23728007 (Version 3)
Quarter: 2024Q2

REPORT INFORMATION
  Report Type: Report from Study
  Country: BR (occurrence: BR)
  Receive Date: 20240410
  Receipt Date: 20240524
  Transmission Date: 20240715
  Serious: Yes (Other)
  Sender: FDA-Public Use
  Company Number: BR-AstraZeneca-2024A083434

PATIENT
  Age: 250 Day
  Sex: Female
  Weight: 8 kg

DRUGS (3)
  1. SYNAGIS [Suspect]
     Active Substance: PALIVIZUMAB
     Indication: Antiviral prophylaxis
     Route: 030
     Dates: start: 20240302
  2. FUROSEMIDE [Concomitant]
     Active Substance: FUROSEMIDE
     Indication: Myocardial infarction
     Dosage: 2.0ML UNKNOWN
     Route: 048
  3. FUROSEMIDE [Concomitant]
     Active Substance: FUROSEMIDE
     Indication: Carotid bruit
     Dosage: 2.0ML UNKNOWN
     Route: 048

REACTIONS (3)
  - Seizure [Recovering/Resolving]
  - Pyrexia [Unknown]
  - Haematological infection [Recovering/Resolving]

NARRATIVE: CASE EVENT DATE: 20240326
